FAERS Safety Report 8960962 (Version 1)
Quarter: 2012Q4

REPORT INFORMATION
  Report Type: 
  Country: US (occurrence: US)
  Receive Date: 20121212
  Receipt Date: 20121212
  Transmission Date: 20130627
  Serious: Yes (Hospitalization)
  Sender: FDA-Public Use
  Company Number: US-B.I. PHARMACEUTICALS,INC./RIDGEFIELD-2012-BI-02238BP

PATIENT
  Age: 76 Year
  Sex: Female

DRUGS (9)
  1. SPIRIVA [Suspect]
     Route: 065
  2. CARVEDILOL [Suspect]
     Route: 065
  3. DIGOXIN [Suspect]
     Route: 065
  4. ANASTROZOLE [Suspect]
     Indication: BREAST CANCER
     Dosage: 1 mg
     Route: 065
     Dates: start: 20051213, end: 20100816
  5. ANASTROZOLE [Suspect]
     Dosage: 1 mg
     Route: 065
  6. AMLODIPINE [Suspect]
     Route: 065
  7. VARENICLINE TARTRATE [Suspect]
     Route: 065
  8. ISOSORBIDE MONONITRATE [Suspect]
     Route: 065
  9. TERIPARATIDE [Suspect]
     Route: 065

REACTIONS (2)
  - Myocardial ischaemia [Recovered/Resolved]
  - Left ventricular dysfunction [Recovered/Resolved]
